FAERS Safety Report 21559685 (Version 4)
Quarter: 2024Q1

REPORT INFORMATION
  Report Type: Spontaneous
  Country: US (occurrence: US)
  Receive Date: 20221107
  Receipt Date: 20240311
  Transmission Date: 20240409
  Serious: No
  Sender: FDA-Public Use
  Company Number: US-PFIZER INC-202201279700

PATIENT
  Age: 68 Year
  Sex: Female

DRUGS (13)
  1. IBRANCE [Suspect]
     Active Substance: PALBOCICLIB
     Dosage: 100 MG, CYCLIC (100MG BY MOUTH DAILY ON DAYS 1 THROUGH 21. REPEAT EVERY 28 DAYS)
     Route: 048
     Dates: start: 20200313
  2. IBRANCE [Suspect]
     Active Substance: PALBOCICLIB
     Dosage: 100 MG, CYCLIC
  3. ALEVE [Concomitant]
     Active Substance: NAPROXEN SODIUM
     Dosage: UNK
  4. CALCIUM\CHOLECALCIFEROL [Concomitant]
     Active Substance: CALCIUM\CHOLECALCIFEROL
     Dosage: UNK
  5. CRANBERRY [Concomitant]
     Active Substance: CRANBERRY
     Dosage: UNK
  6. FISH OIL [Concomitant]
     Active Substance: FISH OIL
     Dosage: UNK
  7. GABAPENTIN [Concomitant]
     Active Substance: GABAPENTIN
     Dosage: UNK
  8. LETROZOLE [Concomitant]
     Active Substance: LETROZOLE
     Dosage: UNK
  9. LYSINE [Concomitant]
     Active Substance: LYSINE
     Dosage: UNK
  10. VITAMIN C [Concomitant]
     Active Substance: ASCORBIC ACID
     Dosage: UNK
  11. VITAMINS [Concomitant]
     Active Substance: VITAMINS
     Dosage: UNK
  12. ZINC [Concomitant]
     Active Substance: PYRITHIONE ZINC\ZINC\ZINC CHLORIDE
     Dosage: UNK
  13. PROCHLORPERAZINE [Concomitant]
     Active Substance: PROCHLORPERAZINE
     Dosage: UNK

REACTIONS (4)
  - White blood cell count decreased [Unknown]
  - Urinary tract infection [Unknown]
  - Fatigue [Unknown]
  - Product dose omission in error [Unknown]
